FAERS Safety Report 18138772 (Version 2)
Quarter: 2020Q3

REPORT INFORMATION
  Report Type: Other
  Country: GB (occurrence: GB)
  Receive Date: 20200812
  Receipt Date: 20200816
  Transmission Date: 20201103
  Serious: Yes (Other)
  Sender: FDA-Public Use
  Company Number: GB-ROCHE-2655703

PATIENT
  Age: 12 Month
  Sex: Female

DRUGS (4)
  1. TREOSULFAN [Suspect]
     Active Substance: TREOSULFAN
     Indication: COMBINED IMMUNODEFICIENCY
     Dosage: 36 G/M2
     Route: 065
  2. FLUDARABINE PHOSPHATE. [Suspect]
     Active Substance: FLUDARABINE PHOSPHATE
     Indication: COMBINED IMMUNODEFICIENCY
     Route: 065
  3. RITUXIMAB. [Suspect]
     Active Substance: RITUXIMAB
     Indication: COMBINED IMMUNODEFICIENCY
     Route: 065
  4. THIOTEPA. [Suspect]
     Active Substance: THIOTEPA
     Indication: COMBINED IMMUNODEFICIENCY
     Route: 065

REACTIONS (6)
  - Product use in unapproved indication [Unknown]
  - Mucosal inflammation [Unknown]
  - Off label use [Unknown]
  - Neutrophil count increased [Unknown]
  - Rash [Unknown]
  - Capillary leak syndrome [Unknown]
